FAERS Safety Report 6928078-1 (Version None)
Quarter: 2010Q3

REPORT INFORMATION
  Report Type: 
  Country: None (occurrence: None)
  Receive Date: 20100817
  Receipt Date: 20100817
  Transmission Date: 20110219
  Serious: Yes (Other)
  Sender: FDA-Public Use
  Company Number: None

PATIENT
  Sex: Female

DRUGS (1)
  1. CONCENTRATED MOTRIN INFANTS DROPS [Suspect]
     Indication: PYREXIA
     Dosage: PO
     Route: 048
     Dates: start: 20100623

REACTIONS (3)
  - HYPOPHAGIA [None]
  - OROPHARYNGEAL BLISTERING [None]
  - VOMITING [None]
